FAERS Safety Report 8286348-1 (Version None)
Quarter: 2012Q2

REPORT INFORMATION
  Report Type: 
  Country: None (occurrence: None)
  Receive Date: 20120411
  Receipt Date: 20120411
  Transmission Date: 20120825
  Serious: No
  Sender: FDA-Public Use
  Company Number: None

PATIENT
  Age: 79 Year
  Sex: Female
  Weight: 59.8748 kg

DRUGS (1)
  1. CHLORDIAZEPOXIDE HCL AND CLIDINIUM BROMIDE [Suspect]
     Indication: COLITIS
     Dosage: 1 3/DIEM MOUTH
     Route: 048
     Dates: start: 20120316, end: 20120320

REACTIONS (2)
  - JOINT SWELLING [None]
  - OEDEMA PERIPHERAL [None]
